FAERS Safety Report 10024416 (Version 3)
Quarter: 2014Q1

REPORT INFORMATION
  Report Type: Spontaneous
  Country: JP (occurrence: None)
  Receive Date: 20140203
  Receipt Date: 20140211
  Transmission Date: 20141002
  Serious: Yes (Death, Hospitalization, Other)
  Sender: FDA-Public Use
  Company Number: ADR-2014-00151

PATIENT
  Age: 73 Year
  Sex: Male

DRUGS (1)
  1. GABALON [Suspect]
     Indication: SPINAL CORD INJURY

REACTIONS (1)
  - Sepsis [None]
